FAERS Safety Report 11898105 (Version 1)
Quarter: 2016Q1

REPORT INFORMATION
  Report Type: Spontaneous
  Country: US (occurrence: US)
  Receive Date: 20160108
  Receipt Date: 20160108
  Transmission Date: 20160526
  Serious: No
  Sender: FDA-Public Use
  Company Number: US-BAYER-2016-004203

PATIENT
  Age: 42 Year
  Sex: Female
  Weight: 95.24 kg

DRUGS (2)
  1. ALKA-SELTZER [ACETYLSALICYLIC ACID] [Concomitant]
     Indication: DYSPEPSIA
     Dosage: UNK, PRN
     Route: 048
  2. ALEVE [Suspect]
     Active Substance: NAPROXEN SODIUM
     Indication: ARTHRITIS
     Dosage: 2 DF, PRN
     Route: 048
     Dates: start: 20151130

REACTIONS (2)
  - Therapeutic response unexpected [None]
  - Product use issue [None]
